FAERS Safety Report 9153698 (Version 1)
Quarter: 2013Q1

REPORT INFORMATION
  Report Type: Spontaneous
  Country: FR (occurrence: FR)
  Receive Date: 20130214
  Receipt Date: 20130214
  Transmission Date: 20140127
  Serious: Yes (Hospitalization)
  Sender: FDA-Public Use
  Company Number: FR-RB-PR/990120/69

PATIENT
  Age: 29 Year
  Sex: Female

DRUGS (1)
  1. SUBUTEX [Suspect]
     Indication: DRUG ABUSE
     Dosage: UNKNOWN DOSING DETAILS
     Route: 060
     Dates: start: 19980914, end: 199809

REACTIONS (3)
  - Threatened labour [Recovered/Resolved]
  - Urinary tract infection [Unknown]
  - Exposure during pregnancy [Recovered/Resolved]
